FAERS Safety Report 14773430 (Version 6)
Quarter: 2018Q2

REPORT INFORMATION
  Report Type: Spontaneous
  Country: US (occurrence: US)
  Receive Date: 20180418
  Receipt Date: 20180511
  Transmission Date: 20180711
  Serious: No
  Sender: FDA-Public Use
  Company Number: PHEH2018US014702

PATIENT
  Sex: Female

DRUGS (6)
  1. MAXITROL [Suspect]
     Active Substance: DEXAMETHASONE\NEOMYCIN SULFATE\POLYMYXIN B SULFATE
     Dosage: UNK UNK, QID
     Route: 047
     Dates: start: 20180302, end: 20180313
  2. RANITIDINE. [Concomitant]
     Active Substance: RANITIDINE
     Indication: GASTROOESOPHAGEAL REFLUX DISEASE
     Dosage: UNK UNK, BID
     Route: 065
  3. CALCIUM [Concomitant]
     Active Substance: CALCIUM
     Indication: PRODUCT USED FOR UNKNOWN INDICATION
     Route: 065
  4. MAXITROL [Suspect]
     Active Substance: DEXAMETHASONE\NEOMYCIN SULFATE\POLYMYXIN B SULFATE
     Indication: CONJUNCTIVITIS
     Dosage: UNK UNK, QID
     Route: 047
     Dates: start: 20180228, end: 20180313
  5. OCUVITE [Concomitant]
     Active Substance: VITAMINS
     Indication: PRODUCT USED FOR UNKNOWN INDICATION
     Route: 065
  6. ZYMAR [Suspect]
     Active Substance: GATIFLOXACIN
     Indication: PRODUCT USED FOR UNKNOWN INDICATION
     Route: 065

REACTIONS (9)
  - Eye pruritus [Recovered/Resolved]
  - Ocular hyperaemia [Unknown]
  - Eye infection viral [Unknown]
  - Eye swelling [Not Recovered/Not Resolved]
  - Lacrimation increased [Not Recovered/Not Resolved]
  - Eye irritation [Unknown]
  - Blepharitis [Recovered/Resolved]
  - Visual impairment [Unknown]
  - Photophobia [Unknown]
